FAERS Safety Report 9046132 (Version 1)
Quarter: 2013Q1

REPORT INFORMATION
  Report Type: Spontaneous
  Country: US (occurrence: US)
  Receive Date: 20130201
  Receipt Date: 20130201
  Transmission Date: 20140127
  Serious: No
  Sender: FDA-Public Use
  Company Number: US-BIOGENIDEC-2013BI008141

PATIENT
  Age: 28 Year
  Sex: Female

DRUGS (6)
  1. AVONEX [Suspect]
     Indication: MULTIPLE SCLEROSIS
     Route: 030
     Dates: start: 19991231, end: 200107
  2. AVONEX [Suspect]
     Indication: MULTIPLE SCLEROSIS
     Route: 030
     Dates: start: 200209, end: 2005
  3. AVONEX [Suspect]
     Indication: MULTIPLE SCLEROSIS
     Route: 030
     Dates: start: 2005
  4. HYDROCODONE [Concomitant]
     Indication: HEADACHE
  5. CAFFEINE [Concomitant]
     Indication: HEADACHE
  6. MAGNESIUM SULFATE [Concomitant]
     Indication: PRE-ECLAMPSIA

REACTIONS (4)
  - Sinusitis [Recovered/Resolved]
  - Pneumonia [Recovered/Resolved]
  - Allergic sinusitis [Not Recovered/Not Resolved]
  - Nausea [Recovered/Resolved]
